FAERS Safety Report 14898847 (Version 1)
Quarter: 2018Q2

REPORT INFORMATION
  Report Type: Spontaneous
  Country: PT (occurrence: PT)
  Receive Date: 20180515
  Receipt Date: 20180515
  Transmission Date: 20180711
  Serious: Yes (Disabling)
  Sender: FDA-Public Use
  Company Number: PT-BAUSCH-BL-2018-013410

PATIENT
  Age: 66 Year
  Sex: Male

DRUGS (1)
  1. ALDARA [Suspect]
     Active Substance: IMIQUIMOD
     Indication: HYPERKERATOSIS
     Dosage: 3 DOSAGE FORMS EVERY WEEK
     Route: 061
     Dates: start: 20160531, end: 20160630

REACTIONS (12)
  - Application site pain [Unknown]
  - Scar [Unknown]
  - Blood test abnormal [Recovered/Resolved]
  - Pyrexia [Recovered/Resolved]
  - Decreased appetite [Recovered/Resolved]
  - Pain [Recovered/Resolved]
  - Fatigue [Recovered/Resolved]
  - Application site infection [Recovered/Resolved]
  - Application site exfoliation [Unknown]
  - Malaise [Recovered/Resolved]
  - Eye inflammation [Recovered/Resolved]
  - Insomnia [Recovered/Resolved]

NARRATIVE: CASE EVENT DATE: 20160603
